FAERS Safety Report 9133786 (Version 1)
Quarter: 2013Q1

REPORT INFORMATION
  Report Type: Spontaneous
  Country: RO (occurrence: RO)
  Receive Date: 20130303
  Receipt Date: 20130303
  Transmission Date: 20140127
  Serious: Yes (Hospitalization)
  Sender: FDA-Public Use
  Company Number: RO-TEVA-388951ISR

PATIENT
  Age: 74 Year
  Sex: Female

DRUGS (6)
  1. SIMVASTATIN [Suspect]
     Dosage: 20 MILLIGRAM DAILY; 20 MG DAILY
     Route: 048
  2. INDAPAMIDE [Concomitant]
     Dosage: 1.5 MILLIGRAM DAILY; 1.5 MG DAILY
     Route: 048
  3. TRIMETAZIDINE [Concomitant]
     Dosage: 70 MILLIGRAM DAILY; 70 MG DAILY
     Route: 048
  4. LOSARTAN [Concomitant]
  5. MEBEVERINE [Concomitant]
     Dosage: 400 MILLIGRAM DAILY; 400 MG DAILY
     Route: 048
  6. FLUCONAZOLE [Concomitant]
     Indication: CANDIDA INFECTION
     Dosage: 6 WEEKS PRIOR THE EVENT
     Route: 048

REACTIONS (4)
  - Myalgia [Recovered/Resolved]
  - Asthenia [Recovered/Resolved]
  - Abdominal pain [Recovered/Resolved]
  - Spinal pain [Recovered/Resolved]
